FAERS Safety Report 4959777-9 (Version None)
Quarter: 2006Q1

REPORT INFORMATION
  Report Type: 
  Country: None (occurrence: None)
  Receive Date: 20060331
  Receipt Date: 20060322
  Transmission Date: 20060701
  Serious: Yes (Hospitalization)
  Sender: FDA-Public Use
  Company Number: TW-BRISTOL-MYERS SQUIBB COMPANY-13330774

PATIENT
  Age: 66 Year
  Sex: Female

DRUGS (10)
  1. IFOSFAMIDE [Suspect]
     Indication: CERVIX CARCINOMA
     Route: 041
     Dates: start: 20060223
  2. CISPLATIN [Suspect]
     Indication: CERVIX CARCINOMA
     Route: 041
     Dates: start: 20060222
  3. ATIVAN [Concomitant]
  4. DECADRON SRC [Concomitant]
  5. PRIMPERAN TAB [Concomitant]
  6. CEFAZOLIN [Concomitant]
  7. GENTAMICIN [Concomitant]
  8. STILNOX [Concomitant]
  9. KETOPROFEN [Concomitant]
  10. KYTRIL [Concomitant]

REACTIONS (5)
  - ASCITES [None]
  - HEPATIC STEATOSIS [None]
  - HYDRONEPHROSIS [None]
  - LEUKOCYTOSIS [None]
  - RENAL IMPAIRMENT [None]
